FAERS Safety Report 8980175 (Version 2)
Quarter: 2012Q4

REPORT INFORMATION
  Report Type: 
  Country: US (occurrence: US)
  Receive Date: 20121221
  Receipt Date: 20121221
  Transmission Date: 20130627
  Serious: Yes (Other)
  Sender: FDA-Public Use
  Company Number: US-JNJFOC-20120520377

PATIENT
  Sex: Male

DRUGS (1)
  1. VISINE [Suspect]
     Indication: SEASONAL ALLERGY
     Dosage: about 3 times within the past 9 hours
     Route: 047

REACTIONS (3)
  - Blindness transient [Unknown]
  - Vision blurred [Unknown]
  - Off label use [Unknown]
